FAERS Safety Report 9685258 (Version 2)
Quarter: 2013Q4

REPORT INFORMATION
  Report Type: Spontaneous
  Country: DE (occurrence: DE)
  Receive Date: 20131113
  Receipt Date: 20131210
  Transmission Date: 20140711
  Serious: Yes (Hospitalization)
  Sender: FDA-Public Use
  Company Number: DE-EISAI INC-E2090-02960-SPO-DE

PATIENT
  Age: 26 Year
  Sex: Male
  Weight: 63 kg

DRUGS (3)
  1. ZONEGRAN [Suspect]
     Indication: EPILEPSY
     Dosage: UNKNOWN
     Route: 048
     Dates: start: 20130124, end: 2013
  2. ZONEGRAN [Suspect]
     Dosage: 200MG
     Route: 048
     Dates: start: 2013, end: 20130825
  3. LAMOTRIGIN [Concomitant]
     Indication: EPILEPSY
     Dosage: UNKNOWN
     Route: 048

REACTIONS (2)
  - Nephrolithiasis [Recovered/Resolved]
  - Weight decreased [Unknown]
